FAERS Safety Report 6431992-7 (Version None)
Quarter: 2009Q4

REPORT INFORMATION
  Report Type: 
  Country: None (occurrence: None)
  Receive Date: 20091109
  Receipt Date: 20091029
  Transmission Date: 20100525
  Serious: Yes (Hospitalization)
  Sender: FDA-Public Use
  Company Number: FR-JNJFOC-20091009206

PATIENT
  Sex: Female

DRUGS (7)
  1. HALOPERIDOL [Suspect]
     Indication: PSYCHOTIC DISORDER
     Route: 048
     Dates: end: 20091004
  2. TERCIAN [Suspect]
     Indication: PSYCHOTIC DISORDER
     Route: 048
     Dates: end: 20091004
  3. NEULEPTIL [Suspect]
     Indication: PSYCHOTIC DISORDER
     Route: 048
     Dates: end: 20091004
  4. LEPTICUR [Suspect]
     Indication: PARKINSONISM
     Route: 048
     Dates: end: 20091004
  5. TERALITHE [Suspect]
     Route: 048
     Dates: end: 20091013
  6. TERALITHE [Suspect]
     Route: 048
     Dates: end: 20091013
  7. TERALITHE [Suspect]
     Indication: PSYCHOTIC DISORDER
     Route: 048
     Dates: end: 20091013

REACTIONS (5)
  - DEPRESSED LEVEL OF CONSCIOUSNESS [None]
  - DYSARTHRIA [None]
  - HYPOTHERMIA [None]
  - OEDEMA PERIPHERAL [None]
  - PSYCHOMOTOR RETARDATION [None]
